FAERS Safety Report 14544523 (Version 3)
Quarter: 2018Q1

REPORT INFORMATION
  Report Type: Spontaneous
  Country: JP (occurrence: JP)
  Receive Date: 20180217
  Receipt Date: 20180330
  Transmission Date: 20180509
  Serious: Yes (Hospitalization, Other)
  Sender: FDA-Public Use
  Company Number: JP-AMGEN-JPNSP2018022500

PATIENT
  Age: 52 Year
  Sex: Female
  Weight: 83 kg

DRUGS (27)
  1. AKINETON [Concomitant]
     Active Substance: BIPERIDEN HYDROCHLORIDE
     Indication: DEPRESSION
     Dosage: 1 MG, QD
     Route: 048
  2. SODIUM PICOSULFATE [Concomitant]
     Active Substance: SODIUM PICOSULFATE
     Dosage: 10 ML, AS NECESSARY
     Route: 048
  3. MAGNESIUM OXIDE. [Concomitant]
     Active Substance: MAGNESIUM OXIDE
     Dosage: 660 MG, TID
     Route: 048
  4. RABEPRAZOL [Concomitant]
     Active Substance: RABEPRAZOLE
     Dosage: 10 MG, QD
     Route: 048
  5. CRESTOR [Concomitant]
     Active Substance: ROSUVASTATIN CALCIUM
     Dosage: 2.5 MG, QD
     Route: 048
  6. SYMPROIC [Concomitant]
     Active Substance: NALDEMEDINE
     Indication: BREAST CANCER
     Dosage: 0.2 MG, QD
     Route: 048
  7. LYRICA [Concomitant]
     Active Substance: PREGABALIN
     Indication: METASTASES TO BONE
     Dosage: 50 MG, BID
     Route: 048
  8. OLOPATADINE. [Concomitant]
     Active Substance: OLOPATADINE
     Dosage: 10 MG, BID
     Route: 048
  9. MEQUITAZINE [Concomitant]
     Active Substance: MEQUITAZINE
     Indication: DEPRESSION
     Dosage: 3 MG, BID
     Route: 048
  10. HALCION [Concomitant]
     Active Substance: TRIAZOLAM
     Dosage: 0.5 MG, QD
     Route: 048
  11. SERENACE [Concomitant]
     Active Substance: HALOPERIDOL
     Indication: DEPRESSION
     Dosage: 1.5 MG, QD
     Route: 048
  12. COCARL [Concomitant]
     Active Substance: ACETAMINOPHEN
     Indication: BREAST CANCER
     Dosage: 600 MG, TID
     Route: 048
  13. VOLTAREN [Concomitant]
     Active Substance: DICLOFENAC SODIUM
     Indication: METASTASES TO BONE
  14. TRAVELMIN [Concomitant]
     Active Substance: DIMENHYDRINATE
     Indication: BREAST CANCER
     Dosage: UNK UNK, QD
     Route: 048
  15. OXINORM (OXYCODONE HYDROCHLORIDE) [Concomitant]
     Active Substance: OXYCODONE HYDROCHLORIDE
     Indication: METASTASES TO BONE
  16. COCARL [Concomitant]
     Active Substance: ACETAMINOPHEN
     Indication: METASTASES TO BONE
  17. SYMPROIC [Concomitant]
     Active Substance: NALDEMEDINE
     Indication: METASTASES TO BONE
  18. OXYCONTIN [Concomitant]
     Active Substance: OXYCODONE HYDROCHLORIDE
     Indication: BREAST CANCER
     Dosage: 120 MG, BID
     Route: 048
  19. CONSTAN [Concomitant]
     Active Substance: ALPRAZOLAM
     Dosage: 0.4 MG, QD
     Route: 048
  20. FLUNITRAZEPAM [Concomitant]
     Active Substance: FLUNITRAZEPAM
     Indication: DEPRESSION
     Dosage: 2 MG, QD
     Route: 048
  21. BENZBROMARONE [Concomitant]
     Active Substance: BENZBROMARONE
     Dosage: 25 MG, QD
     Route: 048
  22. OXINORM (OXYCODONE HYDROCHLORIDE) [Concomitant]
     Active Substance: OXYCODONE HYDROCHLORIDE
     Indication: BREAST CANCER
     Dosage: 40 MG, QID
     Route: 048
  23. NOVAMIN [Concomitant]
     Dosage: 5 MG, QD
     Route: 048
  24. RANMARK [Suspect]
     Active Substance: DENOSUMAB
     Indication: METASTASES TO BONE
     Dosage: 120 MG, UNK
     Route: 058
     Dates: start: 20131129, end: 201712
  25. OXYCONTIN [Concomitant]
     Active Substance: OXYCODONE HYDROCHLORIDE
     Indication: METASTASES TO BONE
  26. VOLTAREN [Concomitant]
     Active Substance: DICLOFENAC SODIUM
     Indication: BREAST CANCER
     Dosage: 25 MG, TID
     Route: 048
  27. TRAVELMIN [Concomitant]
     Active Substance: DIMENHYDRINATE
     Indication: METASTASES TO BONE

REACTIONS (3)
  - Fall [Unknown]
  - Lumbar spinal stenosis [Unknown]
  - Atypical femur fracture [Recovering/Resolving]

NARRATIVE: CASE EVENT DATE: 201712
